FAERS Safety Report 20559659 (Version 7)
Quarter: 2022Q3

REPORT INFORMATION
  Report Type: Report from Study
  Country: US (occurrence: US)
  Receive Date: 20220307
  Receipt Date: 20220727
  Transmission Date: 20221027
  Serious: Yes (Hospitalization)
  Sender: FDA-Public Use
  Company Number: US-NOVARTISTESTPH-NVSC2022US052788

PATIENT
  Age: 42 Year
  Sex: Female
  Weight: 83.461 kg

DRUGS (6)
  1. TREPROSTINIL [Suspect]
     Active Substance: TREPROSTINIL
     Indication: Pulmonary arterial hypertension
     Dosage: 97 NG/KG/MIN, CONT
     Route: 058
     Dates: start: 20210723
  2. TREPROSTINIL [Suspect]
     Active Substance: TREPROSTINIL
     Dosage: 86 NG/KG/MIN, CONT
     Route: 058
  3. TREPROSTINIL [Suspect]
     Active Substance: TREPROSTINIL
     Dosage: 97 NG/KG/MIN, CONT
     Route: 058
  4. TADALAFIL [Concomitant]
     Active Substance: TADALAFIL
     Indication: Product used for unknown indication
     Dosage: UNK
     Route: 065
  5. OPSUMIT [Concomitant]
     Active Substance: MACITENTAN
     Indication: Product used for unknown indication
     Dosage: UNK
     Route: 065
  6. REMODULIN [Concomitant]
     Active Substance: TREPROSTINIL
     Indication: Product used for unknown indication
     Dosage: UNK
     Route: 065

REACTIONS (10)
  - Incorrect route of product administration [Unknown]
  - Malaise [Unknown]
  - Weight increased [Unknown]
  - COVID-19 [Unknown]
  - Weight decreased [Unknown]
  - Fatigue [Not Recovered/Not Resolved]
  - Injection site swelling [Unknown]
  - Injection site erythema [Unknown]
  - Syringe issue [Unknown]
  - Device infusion issue [Unknown]

NARRATIVE: CASE EVENT DATE: 20220101
